FAERS Safety Report 4816436-0 (Version None)
Quarter: 2005Q4

REPORT INFORMATION
  Report Type: 
  Country: None (occurrence: None)
  Receive Date: 20051028
  Receipt Date: 20051019
  Transmission Date: 20060501
  Serious: Yes (Hospitalization, Other)
  Sender: FDA-Public Use
  Company Number: GRWYE987819SEP05

PATIENT
  Age: 64 Year
  Sex: Female

DRUGS (5)
  1. EFFEXOR XR [Suspect]
     Indication: DEPRESSION
     Dosage: 75 MG 1X PER 1 DAY, ORAL
     Route: 048
     Dates: start: 20050601, end: 20050818
  2. CHLORPROMAZINE [Suspect]
     Dates: end: 20050801
  3. PHENOBARBITAL [Suspect]
     Dosage: 1 DOSE 1X PER 1 DAY
     Dates: end: 20050801
  4. IMOVANE (ZOPICLONE) [Concomitant]
  5. PROPRANOLOL [Concomitant]

REACTIONS (4)
  - BILE DUCT OBSTRUCTION [None]
  - DRUG INTERACTION [None]
  - JAUNDICE CHOLESTATIC [None]
  - WEIGHT DECREASED [None]
